FAERS Safety Report 8001054-6 (Version None)
Quarter: 2011Q4

REPORT INFORMATION
  Report Type: 
  Country: None (occurrence: None)
  Receive Date: 20111222
  Receipt Date: 20110926
  Transmission Date: 20120403
  Serious: No
  Sender: FDA-Public Use
  Company Number: US-GLAXOSMITHKLINE-A0946011A

PATIENT
  Age: 53 Year
  Sex: Female

DRUGS (4)
  1. ALLEGRA [Concomitant]
  2. FLONASE [Suspect]
     Indication: RHINITIS ALLERGIC
     Route: 045
     Dates: start: 19960101, end: 20110701
  3. LOESTRIN 1.5/30 [Concomitant]
  4. VALTREX [Concomitant]

REACTIONS (3)
  - FUNGAL OESOPHAGITIS [None]
  - FATIGUE [None]
  - LIP EXFOLIATION [None]
